FAERS Safety Report 7974539-6 (Version None)
Quarter: 2011Q4

REPORT INFORMATION
  Report Type: 
  Country: None (occurrence: None)
  Receive Date: 20111213
  Receipt Date: 20111205
  Transmission Date: 20120403
  Serious: Yes (Disabling, Other)
  Sender: FDA-Public Use
  Company Number: US-ABBOTT-11P-163-0880560-00

PATIENT
  Sex: Female
  Weight: 58.112 kg

DRUGS (2)
  1. HUMIRA [Suspect]
     Dates: start: 20110901
  2. HUMIRA [Suspect]
     Indication: RHEUMATOID ARTHRITIS

REACTIONS (17)
  - MENISCUS LESION [None]
  - COGNITIVE DISORDER [None]
  - RHEUMATOID ARTHRITIS [None]
  - OSTEOARTHRITIS [None]
  - JOINT SWELLING [None]
  - SCLERAL DEGENERATION [None]
  - RETINAL DETACHMENT [None]
  - ARTHRALGIA [None]
  - EYE HAEMORRHAGE [None]
  - MENISCAL DEGENERATION [None]
  - VISION BLURRED [None]
  - VISUAL ACUITY REDUCED [None]
  - LACRIMATION INCREASED [None]
  - EYE OEDEMA [None]
  - ARTHROPATHY [None]
  - EYE DISORDER [None]
  - GAIT DISTURBANCE [None]
